FAERS Safety Report 13149929 (Version 3)
Quarter: 2017Q1

REPORT INFORMATION
  Report Type: Report from Study
  Country: None (occurrence: CA)
  Receive Date: 20170125
  Receipt Date: 20170131
  Transmission Date: 20170428
  Serious: Yes (Death, Hospitalization, Other)
  Sender: FDA-Public Use
  Company Number: CA-ABBVIE-17K-028-1850240-00

PATIENT
  Sex: Female

DRUGS (1)
  1. HUMIRA [Suspect]
     Active Substance: ADALIMUMAB
     Indication: RHEUMATOID ARTHRITIS
     Route: 058
     Dates: start: 20040712, end: 201501

REACTIONS (9)
  - Dyspnoea [Not Recovered/Not Resolved]
  - Pain [Unknown]
  - Pulmonary fibrosis [Fatal]
  - Rib fracture [Unknown]
  - Limb injury [Unknown]
  - Non-small cell lung cancer stage II [Fatal]
  - Joint injury [Unknown]
  - Emphysema [Fatal]
  - Accident [Unknown]
